FAERS Safety Report 26047994 (Version 1)
Quarter: 2025Q4

REPORT INFORMATION
  Report Type: Spontaneous
  Country: EU (occurrence: EU)
  Receive Date: 20251114
  Receipt Date: 20251114
  Transmission Date: 20260117
  Serious: Yes (Other)
  Sender: B. BRAUN MEDICAL INC.
  Company Number: EU-B. Braun Medical Inc.-ES-BBM-202504340

PATIENT
  Age: 50 Year
  Sex: Male

DRUGS (1)
  1. ACETAMINOPHEN [Suspect]
     Active Substance: ACETAMINOPHEN
     Dosage: 15 G OF PARACETAMOL.

REACTIONS (1)
  - Nephropathy toxic [Recovering/Resolving]
